FAERS Safety Report 4333186-8 (Version None)
Quarter: 2004Q2

REPORT INFORMATION
  Report Type: 
  Country: None (occurrence: None)
  Receive Date: 20040402
  Receipt Date: 20040402
  Transmission Date: 20050107
  Serious: No
  Sender: FDA-Public Use
  Company Number: None

PATIENT
  Age: 57 Year
  Sex: Female
  Weight: 98 kg

DRUGS (1)
  1. CARMUSTINE [Suspect]
     Indication: HODGKIN'S DISEASE
     Dosage: 119 MG IV
     Route: 042

REACTIONS (1)
  - INJECTION SITE EXTRAVASATION [None]
